FAERS Safety Report 12241113 (Version 3)
Quarter: 2017Q2

REPORT INFORMATION
  Report Type: Spontaneous
  Country: IN (occurrence: IN)
  Receive Date: 20160406
  Receipt Date: 20170615
  Transmission Date: 20170830
  Serious: Yes (Hospitalization)
  Sender: FDA-Public Use
  Company Number: IN-SUN PHARMACEUTICAL INDUSTRIES LTD-2016R1-114340

PATIENT
  Age: 25 Year
  Sex: Female

DRUGS (1)
  1. LITHIUM. [Suspect]
     Active Substance: LITHIUM
     Indication: SCHIZOAFFECTIVE DISORDER
     Dosage: UNK
     Route: 065

REACTIONS (10)
  - Altered state of consciousness [Recovering/Resolving]
  - Vomiting [Unknown]
  - Abdominal pain [Unknown]
  - Pyrexia [Unknown]
  - Muscular weakness [Recovering/Resolving]
  - Toxicity to various agents [Recovering/Resolving]
  - Urinary incontinence [Unknown]
  - Nervous system disorder [Recovering/Resolving]
  - Tremor [Unknown]
  - Renal impairment [Unknown]
